FAERS Safety Report 4301427-9 (Version None)
Quarter: 2004Q1

REPORT INFORMATION
  Report Type: 
  Country: None (occurrence: None)
  Receive Date: 20040219
  Receipt Date: 20040209
  Transmission Date: 20041129
  Serious: Yes (Death, Life-Threatening)
  Sender: FDA-Public Use
  Company Number: GB-JNJFOC-20030707128

PATIENT
  Age: 44 Year
  Sex: Male

DRUGS (9)
  1. REMICADE [Suspect]
     Indication: RHEUMATOID ARTHRITIS
     Dosage: 200 MG, 1 IN 1 DAY, INTRAVENOUS
     Route: 042
     Dates: start: 20030701, end: 20030701
  2. METHOTREXATE [Concomitant]
  3. FUROSEMIDE [Concomitant]
  4. ACECLOFENAC (ACECLOFENAC) [Concomitant]
  5. SERTRALINE HCL [Concomitant]
  6. CHLORAMBUCIL (CHLORAMBUCIL) [Concomitant]
  7. PERINDOPRIL (PERINDOPRIL) [Concomitant]
  8. NEXIUM [Concomitant]
  9. FOLIC ACID [Concomitant]

REACTIONS (2)
  - ACUTE MYELOID LEUKAEMIA [None]
  - CARCINOMA [None]
